FAERS Safety Report 5608458-7 (Version None)
Quarter: 2008Q1

REPORT INFORMATION
  Report Type: 
  Country: None (occurrence: None)
  Receive Date: 20080125
  Receipt Date: 20080118
  Transmission Date: 20080703
  Serious: Yes (Other)
  Sender: FDA-Public Use
  Company Number: 2008001942

PATIENT
  Age: 34 Year
  Sex: Female
  Weight: 108.8633 kg

DRUGS (1)
  1. LISTERINE WHITENING PRE-BRUSH RINSE (NO ACTIVE INGREDIENT) [Suspect]
     Indication: DENTAL CARE
     Dosage: ORAL
     Route: 048
     Dates: start: 20080114

REACTIONS (3)
  - THERMAL BURN [None]
  - TONGUE BLACK HAIRY [None]
  - TONGUE BLISTERING [None]
